FAERS Safety Report 5260268-9 (Version None)
Quarter: 2007Q1

REPORT INFORMATION
  Report Type: 
  Country: None (occurrence: None)
  Receive Date: 20070309
  Receipt Date: 20060614
  Transmission Date: 20070707
  Serious: No
  Sender: FDA-Public Use
  Company Number: US-GLAXOSMITHKLINE-A0608742A

PATIENT
  Age: 42 Year
  Sex: Female

DRUGS (1)
  1. NICORETTE (MINT) [Suspect]
     Dates: start: 20060610, end: 20060612

REACTIONS (4)
  - ERYTHEMA [None]
  - INSOMNIA [None]
  - LIP SWELLING [None]
  - PRURITUS GENERALISED [None]
